FAERS Safety Report 10522553 (Version 1)
Quarter: 2014Q4

REPORT INFORMATION
  Report Type: Spontaneous
  Country: US (occurrence: US)
  Receive Date: 20141016
  Receipt Date: 20141016
  Transmission Date: 20150528
  Serious: No
  Sender: FDA-Public Use
  Company Number: US-BAYER-2014-145369

PATIENT
  Age: 55 Year
  Sex: Male

DRUGS (4)
  1. NEUTROGENA SKIN CLEARING [Interacting]
     Active Substance: SALICYLIC ACID
  2. FINACEA [Suspect]
     Active Substance: AZELAIC ACID
     Indication: ROSACEA
  3. CLEAN + CLEAR [Interacting]
     Active Substance: COSMETICS
     Dosage: 2-3 TIMES A WEEK
  4. FINACEA [Interacting]
     Active Substance: AZELAIC ACID
     Indication: ACNE

REACTIONS (3)
  - Acne [None]
  - Drug ineffective [None]
  - Drug interaction [None]
